FAERS Safety Report 26180104 (Version 1)
Quarter: 2025Q4

REPORT INFORMATION
  Report Type: Spontaneous
  Country: US (occurrence: None)
  Receive Date: 20251219
  Receipt Date: 20251219
  Transmission Date: 20260117
  Serious: Yes (Other)
  Sender: FDA-CTU
  Company Number: None

PATIENT
  Sex: Male

DRUGS (5)
  1. HEMLIBRA [Suspect]
     Active Substance: EMICIZUMAB-KXWH
     Indication: Factor VIII deficiency
     Dosage: FINSERT ONE HUNDRED TWENTY (120) MILLIGRAMS (2 VIALS) UNDER THE SKIN WEEKLY ON SATURDAY
     Route: 058
     Dates: start: 20251219
  2. KOGENATE FS INJ 1000/BS [Concomitant]
  3. MULTI VITAMI TAB D-3 [Concomitant]
  4. OXYCONTIN TAB 20MG CR [Concomitant]
  5. TRAMADOLHCLTAB50MG [Concomitant]

REACTIONS (2)
  - Arthrodesis [None]
  - Intentional dose omission [None]
